FAERS Safety Report 20790689 (Version 1)
Quarter: 2022Q2

REPORT INFORMATION
  Report Type: Report from Study
  Country: CO (occurrence: CO)
  Receive Date: 20220505
  Receipt Date: 20220505
  Transmission Date: 20220721
  Serious: Yes (Other)
  Sender: FDA-Public Use
  Company Number: CO-JNJFOC-20220458105

PATIENT
  Age: 60 Year
  Sex: Female
  Weight: 76 kg

DRUGS (8)
  1. SIMPONI [Suspect]
     Active Substance: GOLIMUMAB
     Indication: Ankylosing spondylitis
     Route: 058
     Dates: start: 202010
  2. SIMPONI [Suspect]
     Active Substance: GOLIMUMAB
     Route: 058
     Dates: start: 20220325
  3. HYDROXYZINE [Suspect]
     Active Substance: HYDROXYZINE HYDROCHLORIDE
     Indication: Product used for unknown indication
     Route: 042
  4. HYDROCORTISONE [Suspect]
     Active Substance: HYDROCORTISONE
     Indication: Product used for unknown indication
     Route: 042
  5. LOSARTAN [Suspect]
     Active Substance: LOSARTAN
     Indication: Hypertension
     Route: 065
  6. LEVOTHYROXINE [Concomitant]
     Active Substance: LEVOTHYROXINE
  7. PANTOPRAZOLE [Concomitant]
     Active Substance: PANTOPRAZOLE
  8. ACETAMINOPHEN [Concomitant]
     Active Substance: ACETAMINOPHEN

REACTIONS (9)
  - Hypertensive crisis [Recovering/Resolving]
  - Sense of oppression [Recovering/Resolving]
  - Effusion [Recovering/Resolving]
  - Herpes virus infection [Recovering/Resolving]
  - Hypersensitivity [Recovering/Resolving]
  - Application site pruritus [Recovering/Resolving]
  - Papule [Not Recovered/Not Resolved]
  - Dizziness [Not Recovered/Not Resolved]
  - Somnolence [Recovering/Resolving]

NARRATIVE: CASE EVENT DATE: 20201001
